FAERS Safety Report 26069537 (Version 1)
Quarter: 2025Q4

REPORT INFORMATION
  Report Type: Spontaneous
  Country: EU (occurrence: EU)
  Receive Date: 20251120
  Receipt Date: 20251120
  Transmission Date: 20260118
  Serious: Yes (Other)
  Sender: RANBAXY
  Company Number: EU-BFARM-25005517

PATIENT
  Sex: Female

DRUGS (2)
  1. OLANZAPINE [Suspect]
     Active Substance: OLANZAPINE
     Indication: Product used for unknown indication
     Dosage: UNK
     Route: 065
     Dates: start: 20250626
  2. METHYLPHENIDATE [Suspect]
     Active Substance: METHYLPHENIDATE
     Indication: Attention deficit hyperactivity disorder
     Dosage: UNK
     Route: 065
     Dates: start: 20250107

REACTIONS (21)
  - Circulatory collapse [Unknown]
  - Arrhythmia [Unknown]
  - Contraindicated product administered [Unknown]
  - Medication error [Unknown]
  - Withdrawal syndrome [Unknown]
  - Tremor [Unknown]
  - Feeling cold [Unknown]
  - Hyperhidrosis [Unknown]
  - Muscular weakness [Unknown]
  - Abdominal pain upper [Unknown]
  - Diarrhoea [Unknown]
  - Fatigue [Unknown]
  - Restlessness [Unknown]
  - Sensory overload [Unknown]
  - Panic attack [Unknown]
  - Depressed mood [Unknown]
  - Sleep disorder [Unknown]
  - Autonomic nervous system imbalance [Unknown]
  - Involuntary medical treatment [Unknown]
  - Product communication issue [Unknown]
  - Circumstance or information capable of leading to medication error [Unknown]
